FAERS Safety Report 7557667-9 (Version None)
Quarter: 2011Q2

REPORT INFORMATION
  Report Type: 
  Country: None (occurrence: None)
  Receive Date: 20110620
  Receipt Date: 20110610
  Transmission Date: 20111010
  Serious: Yes (Other)
  Sender: FDA-Public Use
  Company Number: JP-ROCHE-771328

PATIENT
  Age: 60 Year
  Sex: Female
  Weight: 50 kg

DRUGS (4)
  1. PROGRAF [Concomitant]
     Dosage: DOSE FORM: PERORAL AGENT
     Route: 048
     Dates: start: 20100406
  2. PREDNISOLONE [Concomitant]
     Route: 048
     Dates: start: 20041202, end: 20080304
  3. PREDNISOLONE [Concomitant]
     Route: 048
     Dates: start: 20080610
  4. ACTEMRA [Suspect]
     Indication: RHEUMATOID ARTHRITIS
     Route: 041
     Dates: start: 20110113

REACTIONS (1)
  - C-REACTIVE PROTEIN INCREASED [None]
